FAERS Safety Report 14413195 (Version 5)
Quarter: 2018Q1

REPORT INFORMATION
  Report Type: Report from Study
  Country: None (occurrence: NL)
  Receive Date: 20180119
  Receipt Date: 20180302
  Transmission Date: 20180509
  Serious: Yes (Hospitalization)
  Sender: FDA-Public Use
  Company Number: NL-ABBVIE-18P-114-2228527-00

PATIENT

DRUGS (6)
  1. OBINUTUZUMAB. [Concomitant]
     Active Substance: OBINUTUZUMAB
     Indication: CHRONIC LYMPHOCYTIC LEUKAEMIA
     Route: 042
     Dates: start: 20171025, end: 20171025
  2. VENETOCLAX. [Suspect]
     Active Substance: VENETOCLAX
     Route: 048
     Dates: start: 20180103, end: 20180109
  3. OBINUTUZUMAB. [Concomitant]
     Active Substance: OBINUTUZUMAB
     Route: 042
     Dates: start: 20171227
  4. OBINUTUZUMAB. [Concomitant]
     Active Substance: OBINUTUZUMAB
     Route: 042
     Dates: start: 20171227
  5. OBINUTUZUMAB. [Concomitant]
     Active Substance: OBINUTUZUMAB
     Route: 042
     Dates: start: 20171101, end: 20171108
  6. VENETOCLAX. [Suspect]
     Active Substance: VENETOCLAX
     Indication: CHRONIC LYMPHOCYTIC LEUKAEMIA
     Route: 048
     Dates: start: 20171227, end: 20180102

REACTIONS (2)
  - Respiratory tract infection [Recovered/Resolved]
  - Respiratory tract infection [Recovered/Resolved]

NARRATIVE: CASE EVENT DATE: 20180104
